FAERS Safety Report 14834487 (Version 1)
Quarter: 2018Q2

REPORT INFORMATION
  Report Type: Spontaneous
  Country: US (occurrence: US)
  Receive Date: 20180501
  Receipt Date: 20180501
  Transmission Date: 20180711
  Serious: No
  Sender: FDA-Public Use
  Company Number: US-PERRIGO-17US027786

PATIENT
  Age: 53 Year
  Sex: Female
  Weight: 64.85 kg

DRUGS (8)
  1. TRIAMCINOLONE ACETONIDE. [Suspect]
     Active Substance: TRIAMCINOLONE ACETONIDE
     Indication: RASH
     Dosage: 1 APPLICATION, BID
     Route: 061
     Dates: start: 201703, end: 201703
  2. FLUTICASONE. [Concomitant]
     Active Substance: FLUTICASONE
     Indication: HYPERSENSITIVITY
     Dosage: UNKNOWN, UNKNOWN
     Route: 065
     Dates: start: 2002
  3. XELJANZ [Concomitant]
     Active Substance: TOFACITINIB CITRATE
     Indication: RHEUMATOID ARTHRITIS
     Dosage: UNKNOWN, UNKNOWN
     Route: 065
     Dates: start: 201501
  4. ALPRAZOLAM. [Concomitant]
     Active Substance: ALPRAZOLAM
     Indication: ANXIETY
     Dosage: UNKNOWN, UNKNOWN
     Route: 065
     Dates: start: 2002
  5. NAPROXEN. [Concomitant]
     Active Substance: NAPROXEN
     Indication: INFLAMMATION
     Dosage: UNKNOWN, UNKNOWN
     Route: 065
     Dates: start: 2002
  6. DEXTROAMPHETAMINE                  /00016601/ [Concomitant]
     Active Substance: DEXTROAMPHETAMINE
     Indication: ATTENTION DEFICIT/HYPERACTIVITY DISORDER
     Dosage: UNKNOWN, UNKNOWN
     Route: 065
     Dates: start: 2002
  7. HYDROCODONE BITARTRATE AND ACETAMINOPHEN [Concomitant]
     Active Substance: ACETAMINOPHEN\HYDROCODONE BITARTRATE
     Indication: PAIN
     Dosage: 5/325 MG, UNKNOWN
     Route: 065
     Dates: start: 2002
  8. VENTOLIN [Concomitant]
     Active Substance: ALBUTEROL SULFATE
     Indication: ASTHMA
     Dosage: UNKNOWN, UNKNOWN
     Route: 065
     Dates: start: 2002

REACTIONS (1)
  - Condition aggravated [Not Recovered/Not Resolved]

NARRATIVE: CASE EVENT DATE: 201703
